FAERS Safety Report 8521195-4 (Version None)
Quarter: 2012Q3

REPORT INFORMATION
  Report Type: 
  Country: None (occurrence: None)
  Receive Date: 20120719
  Receipt Date: 20120711
  Transmission Date: 20120928
  Serious: Yes (Hospitalization)
  Sender: FDA-Public Use
  Company Number: MX-ROCHE-1087627

PATIENT
  Sex: Female
  Weight: 67 kg

DRUGS (4)
  1. HERCEPTIN [Suspect]
     Route: 048
     Dates: start: 20120605
  2. THEOPHYLLINE [Concomitant]
     Indication: PULMONARY FIBROSIS
     Route: 048
     Dates: start: 20090101
  3. HERCEPTIN [Suspect]
     Indication: BREAST CANCER
     Route: 042
     Dates: start: 20120401
  4. ENALAPRIL MALEATE [Concomitant]
     Indication: HYPERTENSION
     Route: 048
     Dates: start: 20100101

REACTIONS (2)
  - CATHETER SITE PAIN [None]
  - CORONARY ARTERY THROMBOSIS [None]
